FAERS Safety Report 8828859 (Version 2)
Quarter: 2012Q4

REPORT INFORMATION
  Report Type: 
  Country: JP (occurrence: JP)
  Receive Date: 20121008
  Receipt Date: 20121023
  Transmission Date: 20130627
  Serious: Yes (Other)
  Sender: FDA-Public Use
  Company Number: JP-ROCHE-1141803

PATIENT
  Age: 56 Year
  Sex: Female

DRUGS (15)
  1. DENOSINE [Suspect]
     Indication: CYTOMEGALOVIRUS INFECTION
     Route: 041
     Dates: end: 20120719
  2. DENOSINE [Suspect]
     Indication: SYSTEMIC LUPUS ERYTHEMATOSUS
  3. DIOVAN [Concomitant]
     Route: 048
  4. ADALAT [Concomitant]
     Route: 048
  5. PREDNISOLONE [Concomitant]
     Route: 048
  6. PROGRAFT [Concomitant]
     Route: 048
  7. ISCOTIN [Concomitant]
     Route: 048
  8. BAKTAR [Concomitant]
     Route: 048
  9. BAYASPIRIN [Concomitant]
     Route: 048
  10. FOSAMAX [Concomitant]
     Route: 048
  11. ALFAROL [Concomitant]
     Route: 048
  12. LIPITOR [Concomitant]
     Route: 048
  13. FAMOTIDINE [Concomitant]
     Route: 048
  14. LENDORMIN [Concomitant]
     Route: 048
  15. MAGLAX [Concomitant]
     Route: 048

REACTIONS (2)
  - Bipolar I disorder [Not Recovered/Not Resolved]
  - Hyponatraemia [Recovered/Resolved]
